FAERS Safety Report 20848483 (Version 1)
Quarter: 2022Q2

REPORT INFORMATION
  Report Type: Spontaneous
  Country: US (occurrence: US)
  Receive Date: 20220519
  Receipt Date: 20220519
  Transmission Date: 20220721
  Serious: No
  Sender: FDA-Public Use
  Company Number: US-AMGEN-USASP2022079298

PATIENT
  Sex: Female

DRUGS (29)
  1. REPATHA [Suspect]
     Active Substance: EVOLOCUMAB
     Indication: Product used for unknown indication
     Route: 065
  2. REPATHA [Suspect]
     Active Substance: EVOLOCUMAB
     Route: 065
  3. REPATHA [Suspect]
     Active Substance: EVOLOCUMAB
     Route: 065
  4. REPATHA [Suspect]
     Active Substance: EVOLOCUMAB
     Route: 065
  5. REPATHA [Suspect]
     Active Substance: EVOLOCUMAB
     Route: 065
  6. REPATHA [Suspect]
     Active Substance: EVOLOCUMAB
     Route: 065
  7. REPATHA [Suspect]
     Active Substance: EVOLOCUMAB
     Route: 065
  8. REPATHA [Suspect]
     Active Substance: EVOLOCUMAB
     Route: 065
  9. REPATHA [Suspect]
     Active Substance: EVOLOCUMAB
     Route: 065
  10. REPATHA [Suspect]
     Active Substance: EVOLOCUMAB
     Route: 065
  11. REPATHA [Suspect]
     Active Substance: EVOLOCUMAB
     Route: 065
  12. REPATHA [Suspect]
     Active Substance: EVOLOCUMAB
     Route: 065
  13. REPATHA [Suspect]
     Active Substance: EVOLOCUMAB
     Route: 065
  14. REPATHA [Suspect]
     Active Substance: EVOLOCUMAB
     Route: 065
  15. REPATHA [Suspect]
     Active Substance: EVOLOCUMAB
     Route: 065
  16. REPATHA [Suspect]
     Active Substance: EVOLOCUMAB
     Route: 065
  17. REPATHA [Suspect]
     Active Substance: EVOLOCUMAB
     Route: 065
  18. REPATHA [Suspect]
     Active Substance: EVOLOCUMAB
     Route: 065
  19. REPATHA [Suspect]
     Active Substance: EVOLOCUMAB
     Route: 065
  20. REPATHA [Suspect]
     Active Substance: EVOLOCUMAB
     Route: 065
  21. REPATHA [Suspect]
     Active Substance: EVOLOCUMAB
     Route: 065
  22. REPATHA [Suspect]
     Active Substance: EVOLOCUMAB
     Route: 065
  23. REPATHA [Suspect]
     Active Substance: EVOLOCUMAB
     Route: 065
  24. REPATHA [Suspect]
     Active Substance: EVOLOCUMAB
     Route: 065
  25. REPATHA [Suspect]
     Active Substance: EVOLOCUMAB
     Route: 065
  26. REPATHA [Suspect]
     Active Substance: EVOLOCUMAB
     Route: 065
  27. REPATHA [Suspect]
     Active Substance: EVOLOCUMAB
     Route: 065
  28. REPATHA [Suspect]
     Active Substance: EVOLOCUMAB
     Route: 065
  29. REPATHA [Suspect]
     Active Substance: EVOLOCUMAB
     Route: 065

REACTIONS (1)
  - Device difficult to use [Unknown]

NARRATIVE: CASE EVENT DATE: 20210101
